FAERS Safety Report 11392464 (Version 2)
Quarter: 2015Q3

REPORT INFORMATION
  Report Type: Report from Study
  Country: US (occurrence: US)
  Receive Date: 20150818
  Receipt Date: 20150826
  Transmission Date: 20151125
  Serious: Yes (Hospitalization, Other)
  Sender: FDA-Public Use
  Company Number: US-GLAXOSMITHKLINE-US2015GSK115565

PATIENT
  Age: 52 Year
  Sex: Male
  Weight: 81.4 kg

DRUGS (18)
  1. PANTOPRAZOLE [Concomitant]
     Active Substance: PANTOPRAZOLE SODIUM
  2. INSULIN REGULAR [Concomitant]
     Active Substance: INSULIN NOS
  3. TYKERB [Suspect]
     Active Substance: LAPATINIB DITOSYLATE
     Indication: HEAD AND NECK CANCER METASTATIC
     Dosage: 1500 MG, QD
     Dates: start: 20150728, end: 20150805
  4. NYSTATIN. [Concomitant]
     Active Substance: NYSTATIN
  5. OXYCODONE [Concomitant]
     Active Substance: OXYCODONE
  6. PROCHLORPERAZINE. [Concomitant]
     Active Substance: PROCHLORPERAZINE
  7. HEPARIN [Concomitant]
     Active Substance: HEPARIN SODIUM
  8. GABAPENTIN. [Concomitant]
     Active Substance: GABAPENTIN
  9. OLMESARTAN [Concomitant]
     Active Substance: OLMESARTAN
  10. AMLODIPINE [Concomitant]
     Active Substance: AMLODIPINE BESYLATE
  11. ONDANSETRON [Concomitant]
     Active Substance: ONDANSETRON
  12. FENTANYL. [Concomitant]
     Active Substance: FENTANYL
  13. DEXAMETHASONE. [Concomitant]
     Active Substance: DEXAMETHASONE
  14. ALBUTEROL. [Concomitant]
     Active Substance: ALBUTEROL
  15. ACETYLCYSTEINE. [Concomitant]
     Active Substance: ACETYLCYSTEINE
  16. LORAZEPAM. [Concomitant]
     Active Substance: LORAZEPAM
  17. CISPLATIN. [Suspect]
     Active Substance: CISPLATIN
     Indication: HEAD AND NECK CANCER METASTATIC
     Dosage: 199 MG, CYC
     Route: 042
     Dates: start: 20150805, end: 20150805
  18. DEXTROSE. [Concomitant]
     Active Substance: DEXTROSE

REACTIONS (4)
  - Depressed level of consciousness [Recovered/Resolved]
  - Hyperglycaemia [Recovering/Resolving]
  - Acute kidney injury [Recovered/Resolved]
  - Sepsis [Recovered/Resolved]

NARRATIVE: CASE EVENT DATE: 20150806
